FAERS Safety Report 8971542 (Version 1)
Quarter: 2012Q4

REPORT INFORMATION
  Report Type: 
  Country: US (occurrence: US)
  Receive Date: 20121218
  Receipt Date: 20121218
  Transmission Date: 20130627
  Serious: Yes (Hospitalization)
  Sender: FDA-Public Use
  Company Number: PHEH2012US024561

PATIENT
  Sex: Female

DRUGS (5)
  1. DIOVAN [Suspect]
  2. CADUET [Concomitant]
  3. COREG [Concomitant]
  4. BABY ASPIRIN [Concomitant]
  5. LASIKAL [Concomitant]

REACTIONS (1)
  - Asthma [Unknown]
